FAERS Safety Report 14731046 (Version 1)
Quarter: 2018Q2

REPORT INFORMATION
  Report Type: Spontaneous
  Country: US (occurrence: US)
  Receive Date: 20180403
  Receipt Date: 20180403
  Transmission Date: 20180711
  Serious: Yes (Other)
  Sender: FDA-Public Use
  Company Number: None

PATIENT
  Age: 73 Year
  Sex: Female
  Weight: 99.79 kg

DRUGS (16)
  1. FERROUS CLUC [Concomitant]
  2. CALCIUM D3 [Concomitant]
     Active Substance: CALCIUM\CHOLECALCIFEROL
  3. SYNTHROID [Concomitant]
     Active Substance: LEVOTHYROXINE SODIUM
  4. LORAZEPAM. [Concomitant]
     Active Substance: LORAZEPAM
  5. SUMATRIPTAN. [Concomitant]
     Active Substance: SUMATRIPTAN
  6. OXYBUTYNIN. [Concomitant]
     Active Substance: OXYBUTYNIN CHLORIDE
  7. POT CHLORIDE [Concomitant]
     Active Substance: POTASSIUM CHLORIDE
  8. MELOXICAM. [Concomitant]
     Active Substance: MELOXICAM
  9. MAGNESIUM [Concomitant]
     Active Substance: MAGNESIUM
  10. CAP CARTIA [Concomitant]
  11. CHLORIDE [Concomitant]
     Active Substance: CHLORIDE ION
  12. LIQUID ROLAIDS [Concomitant]
  13. PROLIA [Suspect]
     Active Substance: DENOSUMAB
  14. XARELTO [Concomitant]
     Active Substance: RIVAROXABAN
  15. PROMETHAZINE [Concomitant]
     Active Substance: PROMETHAZINE\PROMETHAZINE HYDROCHLORIDE
  16. VITAMIN E [Concomitant]
     Active Substance: .ALPHA.-TOCOPHEROL

REACTIONS (7)
  - Ear pain [None]
  - Hypertension [None]
  - Arthralgia [None]
  - Pain in jaw [None]
  - Pain in extremity [None]
  - Breast pain [None]
  - Musculoskeletal chest pain [None]

NARRATIVE: CASE EVENT DATE: 20180321
